FAERS Safety Report 4954737-6 (Version None)
Quarter: 2006Q1

REPORT INFORMATION
  Report Type: 
  Country: None (occurrence: None)
  Receive Date: 20060327
  Receipt Date: 20060324
  Transmission Date: 20060701
  Serious: Yes (Life-Threatening)
  Sender: FDA-Public Use
  Company Number: CO-BOEHRINGER INGELHEIM PHARMACEUTICALS, INC.-2006-BP-03331CL

PATIENT
  Sex: Male

DRUGS (2)
  1. SECOTEX CAPSULES [Suspect]
     Indication: BENIGN PROSTATIC HYPERPLASIA
     Route: 048
     Dates: start: 20051129, end: 20051201
  2. METOPROLOL [Concomitant]
     Indication: HYPERTENSION
     Route: 048

REACTIONS (1)
  - HYPOTENSION [None]
